FAERS Safety Report 7958347-8 (Version None)
Quarter: 2011Q4

REPORT INFORMATION
  Report Type: 
  Country: None (occurrence: None)
  Receive Date: 20111205
  Receipt Date: 20111123
  Transmission Date: 20120403
  Serious: Yes (Other)
  Sender: FDA-Public Use
  Company Number: US-AMGEN-USANI2011051882

PATIENT
  Sex: Female

DRUGS (2)
  1. PROCRIT [Suspect]
     Indication: PRODUCT USED FOR UNKNOWN INDICATION
  2. CHEMOTHERAPEUTICS [Concomitant]

REACTIONS (2)
  - MENTAL STATUS CHANGES [None]
  - CAROTID ARTERY OCCLUSION [None]
